FAERS Safety Report 8555324-3 (Version None)
Quarter: 2012Q3

REPORT INFORMATION
  Report Type: 
  Country: None (occurrence: None)
  Receive Date: 20120731
  Receipt Date: 20120403
  Transmission Date: 20120928
  Serious: No
  Sender: FDA-Public Use
  Company Number: US-ASTRAZENECA-2011SE38646

PATIENT
  Age: 51 Year
  Sex: Male
  Weight: 113.4 kg

DRUGS (13)
  1. SEROQUEL [Suspect]
     Indication: PANIC ATTACK
     Dosage: 100 MG IN THE MORNING, 50 MG IN THE AFTERNOON AND 50 MG AT NIGHT
     Route: 048
     Dates: start: 20090101, end: 20110625
  2. TRAMADOL HYDROCHLORIDE [Concomitant]
     Indication: ARTHRITIS
  3. CELEXA [Concomitant]
     Indication: ANXIOLYTIC THERAPY
  4. KLONOPIN [Concomitant]
     Indication: BIPOLAR DISORDER
  5. SEROQUEL [Suspect]
     Indication: BIPOLAR DISORDER
     Dosage: 100 MG IN THE MORNING, 50 MG IN THE AFTERNOON AND 50 MG AT NIGHT
     Route: 048
     Dates: start: 20090101, end: 20110625
  6. SEROQUEL [Suspect]
     Dosage: 100 MG IN THE MORNING, 50 MG IN THE AFTERNOON AND 50 MG AT NIGHT
     Route: 048
  7. TRAZODONE HCL [Concomitant]
     Indication: ANXIOLYTIC THERAPY
  8. KLONOPIN [Concomitant]
     Indication: SLEEP DISORDER
  9. SEROQUEL [Suspect]
     Dosage: 100 MG IN THE MORNING, 50 MG IN THE AFTERNOON AND 50 MG AT NIGHT
     Route: 048
  10. SEROQUEL [Suspect]
     Dosage: 100 MG IN THE MORNING, 50 MG IN THE AFTERNOON AND 50 MG AT NIGHT
     Route: 048
  11. BLOOD PRESSURE MEDICATIONS [Concomitant]
  12. XANAX [Concomitant]
  13. SEROQUEL [Suspect]
     Indication: ANXIOLYTIC THERAPY
     Dosage: 100 MG IN THE MORNING, 50 MG IN THE AFTERNOON AND 50 MG AT NIGHT
     Route: 048
     Dates: start: 20090101, end: 20110625

REACTIONS (6)
  - DRUG WITHDRAWAL SYNDROME [None]
  - INTENTIONAL DRUG MISUSE [None]
  - SLEEP DISORDER DUE TO GENERAL MEDICAL CONDITION, INSOMNIA TYPE [None]
  - TACHYPHRENIA [None]
  - ANXIETY [None]
  - ABNORMAL DREAMS [None]
